FAERS Safety Report 16409852 (Version 1)
Quarter: 2019Q2

REPORT INFORMATION
  Report Type: Spontaneous
  Country: US (occurrence: US)
  Receive Date: 20190610
  Receipt Date: 20190610
  Transmission Date: 20190711
  Serious: No
  Sender: FDA-Public Use
  Company Number: US-PFIZER INC-2019245802

PATIENT
  Age: 88 Year
  Sex: Female

DRUGS (1)
  1. FLUCONAZOLE. [Suspect]
     Active Substance: FLUCONAZOLE
     Dosage: UNK

REACTIONS (4)
  - Rash [Unknown]
  - Stomatitis [Unknown]
  - Drug hypersensitivity [Unknown]
  - Skin exfoliation [Unknown]
